FAERS Safety Report 6068384-9 (Version None)
Quarter: 2009Q1

REPORT INFORMATION
  Report Type: 
  Country: None (occurrence: None)
  Receive Date: 20090206
  Receipt Date: 20090128
  Transmission Date: 20090719
  Serious: Yes (Hospitalization)
  Sender: FDA-Public Use
  Company Number: IT-BAYER-200831551GPV

PATIENT
  Age: 70 Year
  Sex: Male

DRUGS (10)
  1. CAMPATH [Suspect]
     Indication: PERIPHERAL T-CELL LYMPHOMA UNSPECIFIED
     Route: 058
     Dates: start: 20081105, end: 20081105
  2. CAMPATH [Suspect]
     Route: 058
     Dates: start: 20081112
  3. CAMPATH [Suspect]
     Route: 058
     Dates: start: 20081104, end: 20081104
  4. CYCLOPHOSPHAMIDE [Suspect]
     Indication: PERIPHERAL T-CELL LYMPHOMA UNSPECIFIED
     Dates: start: 20081112
  5. ADRIAMYCIN PFS [Suspect]
     Indication: PERIPHERAL T-CELL LYMPHOMA UNSPECIFIED
     Dates: start: 20081112
  6. VINCRISTINE [Suspect]
     Indication: PERIPHERAL T-CELL LYMPHOMA UNSPECIFIED
     Dates: start: 20081112
  7. PREDNISONE [Suspect]
     Indication: PERIPHERAL T-CELL LYMPHOMA UNSPECIFIED
     Dates: start: 20081112
  8. ZOVIRAX [Concomitant]
     Indication: VIRAL INFECTION
     Route: 042
     Dates: start: 20081113
  9. SPORANOX [Concomitant]
     Indication: FUNGAL INFECTION
     Route: 048
     Dates: start: 20081113
  10. IMIPENEM [Concomitant]
     Indication: BACTERIAL INFECTION
     Route: 042
     Dates: start: 20081113, end: 20081125

REACTIONS (3)
  - MELAENA [None]
  - PRESYNCOPE [None]
  - PYREXIA [None]
